FAERS Safety Report 22116260 (Version 1)
Quarter: 2023Q1

REPORT INFORMATION
  Report Type: Spontaneous
  Country: US (occurrence: None)
  Receive Date: 20230320
  Receipt Date: 20230320
  Transmission Date: 20230418
  Serious: Yes (Disabling)
  Sender: FDA-Public Use
  Company Number: None

PATIENT
  Age: 51 Year
  Sex: Male
  Weight: 99.79 kg

DRUGS (3)
  1. MAVYRET [Suspect]
     Active Substance: GLECAPREVIR\PIBRENTASVIR
     Indication: Hepatitis C
     Dosage: 3 TABLETS ONCE DAILY BY MOUTH??DURATION OF DRUG:  TOOK FOR ABOUT 1 1/2 MONTH
     Route: 048
     Dates: start: 20190726, end: 20190906
  2. OMEPRAZOLE-(ACID REFLEX) [Concomitant]
  3. IBUPROFEN [Concomitant]
     Active Substance: IBUPROFEN

REACTIONS (3)
  - Vision blurred [None]
  - Visual impairment [None]
  - Vitreous floaters [None]

NARRATIVE: CASE EVENT DATE: 20190801
